FAERS Safety Report 4721132-4 (Version None)
Quarter: 2005Q3

REPORT INFORMATION
  Report Type: 
  Country: None (occurrence: None)
  Receive Date: 20050719
  Receipt Date: 20041005
  Transmission Date: 20060218
  Serious: Yes (Other)
  Sender: FDA-Public Use
  Company Number: 2004234933US

PATIENT
  Age: 84 Year
  Sex: Male
  Weight: 72.1 kg

DRUGS (3)
  1. CELEBREX [Suspect]
     Indication: ARTHRITIS
     Dosage: 200 MG, QD, ORAL
     Route: 048
     Dates: start: 20040920, end: 20040923
  2. SINEMET [Concomitant]
  3. ARTANE [Concomitant]

REACTIONS (1)
  - HAEMATURIA [None]
